FAERS Safety Report 25481513 (Version 1)
Quarter: 2025Q2

REPORT INFORMATION
  Report Type: Other
  Country: MA (occurrence: MA)
  Receive Date: 20250626
  Receipt Date: 20250626
  Transmission Date: 20250716
  Serious: Yes (Hospitalization, Disabling, Other)
  Sender: DEXCEL LTD.
  Company Number: MA-DEXPHARM-2025-3536

PATIENT
  Age: 32 Year
  Sex: Female

DRUGS (1)
  1. DEXAMETHASONE [Suspect]
     Active Substance: DEXAMETHASONE
     Dosage: SELF-MEDICATING WITH DEXAMETHASONE AT A DOSE OF 7.5 MG DAILY FOR 4 MONTHS

REACTIONS (2)
  - Self-medication [Recovering/Resolving]
  - Osteonecrosis [Recovering/Resolving]
